FAERS Safety Report 9960837 (Version 1)
Quarter: 2014Q1

REPORT INFORMATION
  Report Type: Report from Study
  Country: US (occurrence: US)
  Receive Date: 20140305
  Receipt Date: 20140305
  Transmission Date: 20141002
  Serious: No
  Sender: FDA-Public Use
  Company Number: US-ABBVIE-13P-163-1108618-00

PATIENT
  Age: 46 Year
  Sex: Male

DRUGS (5)
  1. HUMIRA [Suspect]
     Indication: RHEUMATOID ARTHRITIS
     Dates: start: 20130605
  2. TYLENOL LLL [Concomitant]
     Indication: PAIN
     Dosage: 300/30MG
     Route: 048
  3. OSTEOFLEX GLUCOSAMINE SULPHATE [Concomitant]
     Indication: VITAMIN SUPPLEMENTATION
     Dosage: DAILY
     Route: 048
  4. VITAMIN [Concomitant]
     Indication: VITAMIN SUPPLEMENTATION
     Dosage: DAILY
     Route: 048
  5. ADVIL [Concomitant]
     Indication: PAIN
     Route: 048

REACTIONS (1)
  - Injection site haemorrhage [Recovered/Resolved]
